FAERS Safety Report 24361953 (Version 1)
Quarter: 2024Q3

REPORT INFORMATION
  Report Type: Spontaneous
  Country: TW (occurrence: TW)
  Receive Date: 20240925
  Receipt Date: 20240925
  Transmission Date: 20241017
  Serious: Yes (Other)
  Sender: RANBAXY
  Company Number: TW-SUN PHARMACEUTICAL INDUSTRIES LTD-2024R1-469264

PATIENT
  Age: 39 Year
  Sex: Female

DRUGS (2)
  1. MEDROXYPROGESTERONE [Suspect]
     Active Substance: MEDROXYPROGESTERONE
     Indication: Hereditary non-polyposis colorectal cancer syndrome
     Dosage: 125 MILLIGRAM
     Route: 065
  2. PROGESTERONE [Suspect]
     Active Substance: PROGESTERONE
     Indication: Hereditary non-polyposis colorectal cancer syndrome
     Dosage: UNK
     Route: 048

REACTIONS (1)
  - Disease recurrence [Unknown]
